FAERS Safety Report 16894118 (Version 1)
Quarter: 2019Q4

REPORT INFORMATION
  Report Type: Spontaneous
  Country: US (occurrence: US)
  Receive Date: 20191007
  Receipt Date: 20191007
  Transmission Date: 20200122
  Serious: Yes (Other)
  Sender: FDA-Public Use
  Company Number: None

PATIENT
  Age: 49 Year
  Sex: Female
  Weight: 50.85 kg

DRUGS (2)
  1. AUBAGIO [Suspect]
     Active Substance: TERIFLUNOMIDE
     Indication: MULTIPLE SCLEROSIS
     Dosage: ?          QUANTITY:1 TABLET(S);?
     Route: 048
     Dates: start: 20190726, end: 20190904
  2. RESTASIS [Concomitant]
     Active Substance: CYCLOSPORINE

REACTIONS (7)
  - Product label issue [None]
  - Abdominal distension [None]
  - Diarrhoea [None]
  - Constipation [None]
  - Muscle spasms [None]
  - Flatulence [None]
  - Product formulation issue [None]

NARRATIVE: CASE EVENT DATE: 20190805
